FAERS Safety Report 6144622-9 (Version None)
Quarter: 2009Q2

REPORT INFORMATION
  Report Type: 
  Country: None (occurrence: None)
  Receive Date: 20090406
  Receipt Date: 20090327
  Transmission Date: 20091009
  Serious: Yes (Hospitalization)
  Sender: FDA-Public Use
  Company Number: HR-ABBOTT-09P-216-0565422-00

PATIENT
  Sex: Male

DRUGS (6)
  1. AKINETON [Suspect]
     Indication: SCHIZOPHRENIA
     Route: 048
     Dates: start: 19890101
  2. MODITEN [Suspect]
     Indication: SCHIZOPHRENIA
     Route: 048
     Dates: start: 19890101
  3. LEPONEX [Suspect]
     Indication: SCHIZOPHRENIA
     Route: 048
     Dates: start: 19890101
  4. OXAZEPAM [Suspect]
     Indication: SCHIZOPHRENIA
     Route: 048
     Dates: start: 19890101
  5. EGLONYL [Suspect]
     Indication: SCHIZOPHRENIA
     Route: 048
     Dates: start: 19890101
  6. ATENOLOL [Concomitant]
     Indication: DRUG USE FOR UNKNOWN INDICATION
     Route: 048

REACTIONS (1)
  - HEPATITIS TOXIC [None]
